FAERS Safety Report 11823404 (Version 1)
Quarter: 2015Q4

REPORT INFORMATION
  Report Type: Spontaneous
  Country: US (occurrence: US)
  Receive Date: 20151210
  Receipt Date: 20151210
  Transmission Date: 20160305
  Serious: No
  Sender: FDA-Public Use
  Company Number: GXBR2015US002525

PATIENT
  Sex: Female
  Weight: 72.56 kg

DRUGS (1)
  1. CLOMIPRAMINE [Suspect]
     Active Substance: CLOMIPRAMINE
     Indication: PRODUCT USED FOR UNKNOWN INDICATION
     Dosage: 80 MG, ONCE/SINGLE
     Route: 055
     Dates: start: 20151028, end: 20151028

REACTIONS (2)
  - Nasal discomfort [Recovering/Resolving]
  - Accidental exposure to product [Recovering/Resolving]

NARRATIVE: CASE EVENT DATE: 20151028
